FAERS Safety Report 9368898 (Version 1)
Quarter: 2013Q2

REPORT INFORMATION
  Report Type: Spontaneous
  Country: FI (occurrence: None)
  Receive Date: 20130624
  Receipt Date: 20130624
  Transmission Date: 20140414
  Serious: Yes (Death)
  Sender: FDA-Public Use
  Company Number: AMAG201300103

PATIENT
  Age: 73 Year
  Sex: Male

DRUGS (1)
  1. RIENSO [Suspect]
     Dosage: 510 MG, SINGLE, INTRAVENOUS
     Route: 042
     Dates: start: 20130522, end: 20130522

REACTIONS (1)
  - Death [None]
